FAERS Safety Report 8608685-0 (Version None)
Quarter: 2012Q3

REPORT INFORMATION
  Report Type: 
  Country: None (occurrence: None)
  Receive Date: 20120809
  Receipt Date: 20120809
  Transmission Date: 20120928
  Serious: No
  Sender: FDA-Public Use
  Company Number: None

PATIENT

DRUGS (1)
  1. LEVOTHYROXINE SODIUM [Suspect]
     Indication: HYPOTHYROIDISM
     Dosage: 88 MCG QD ORAL
     Route: 048
     Dates: start: 20100101, end: 20120101

REACTIONS (3)
  - HEADACHE [None]
  - ABDOMINAL DISCOMFORT [None]
  - PAIN [None]
